FAERS Safety Report 7305351-9 (Version None)
Quarter: 2011Q1

REPORT INFORMATION
  Report Type: 
  Country: None (occurrence: None)
  Receive Date: 20110222
  Receipt Date: 20110210
  Transmission Date: 20110831
  Serious: Yes (Other)
  Sender: FDA-Public Use
  Company Number: PHHY2009DE42125

PATIENT
  Sex: Female

DRUGS (9)
  1. LEVOTHYROXINE SODIUM [Concomitant]
     Indication: EMBOLISM ARTERIAL
     Dosage: 150 U/D
     Dates: start: 20030101
  2. RASILEZ [Suspect]
     Indication: HYPERTENSION
     Dosage: 150 MG, QD
     Dates: start: 20090101, end: 20090101
  3. TRUSOPT [Concomitant]
     Indication: GLAUCOMA
     Dosage: 2 DROPS/DAY
     Dates: start: 19890101
  4. DIOVAN [Suspect]
     Indication: HYPERTENSION
     Dosage: 160 MG, QD
     Dates: start: 20090101, end: 20090101
  5. DIOVAN [Suspect]
     Dosage: 320 MG, QD
     Dates: start: 20090101, end: 20090929
  6. RASILEZ [Suspect]
     Dosage: 300 MG, QD
     Dates: start: 20090101, end: 20090101
  7. RASILEZ HCT [Suspect]
     Indication: HYPERTENSION
     Dosage: 1 DF, QD
     Dates: start: 20090101, end: 20090929
  8. ASS 100 [Concomitant]
     Indication: EMBOLISM ARTERIAL
     Dosage: 100 MG/DAY
     Dates: start: 19820101
  9. BIMATOPROST AND TIMOLOL MALEATE [Concomitant]
     Dosage: 2 DROPS/DAY
     Dates: start: 20090101

REACTIONS (2)
  - POLYNEUROPATHY [None]
  - BLOOD PRESSURE FLUCTUATION [None]
